FAERS Safety Report 9190964 (Version 4)
Quarter: 2013Q4

REPORT INFORMATION
  Report Type: Report from Study
  Country: JP (occurrence: JP)
  Receive Date: 20130326
  Receipt Date: 20131101
  Transmission Date: 20140711
  Serious: Yes (Other)
  Sender: FDA-Public Use
  Company Number: JP-ROCHE-1206170

PATIENT
  Age: 78 Year
  Sex: Male

DRUGS (8)
  1. RANIBIZUMAB [Suspect]
     Indication: AGE-RELATED MACULAR DEGENERATION
     Route: 050
     Dates: start: 20111128
  2. RANIBIZUMAB [Suspect]
     Route: 050
     Dates: start: 20120704
  3. RANIBIZUMAB [Suspect]
     Route: 050
     Dates: start: 20120808
  4. RANIBIZUMAB [Suspect]
     Route: 050
     Dates: start: 20120905
  5. RANIBIZUMAB [Suspect]
     Route: 050
     Dates: start: 20130123
  6. RANIBIZUMAB [Suspect]
     Route: 050
     Dates: start: 20130220
  7. RANIBIZUMAB [Suspect]
     Route: 050
     Dates: start: 20130313
  8. MOXIFLOXACIN HYDROCHLORIDE [Concomitant]
     Route: 065
     Dates: start: 201307

REACTIONS (2)
  - Retinal haemorrhage [Recovering/Resolving]
  - Inappropriate schedule of drug administration [Unknown]
